FAERS Safety Report 22541350 (Version 2)
Quarter: 2023Q2

REPORT INFORMATION
  Report Type: Report from Study
  Country: JP (occurrence: JP)
  Receive Date: 20230609
  Receipt Date: 20230613
  Transmission Date: 20230722
  Serious: Yes (Death, Other)
  Sender: FDA-Public Use
  Company Number: JP-TAKEDA-2023TJP007321

PATIENT
  Age: 54 Year
  Sex: Female
  Weight: 53 kg

DRUGS (2)
  1. CABOMETYX [Suspect]
     Active Substance: CABOZANTINIB S-MALATE
     Indication: Hepatocellular carcinoma
     Dosage: 40 MG, QD
     Dates: start: 20221005, end: 20221129
  2. CABOMETYX [Suspect]
     Active Substance: CABOZANTINIB S-MALATE
     Dosage: 20 MG, QD
     Route: 065
     Dates: start: 20221130, end: 20221207

REACTIONS (2)
  - Abdominal pain [Fatal]
  - Haematochezia [Fatal]

NARRATIVE: CASE EVENT DATE: 20221201
